FAERS Safety Report 24556540 (Version 2)
Quarter: 2025Q1

REPORT INFORMATION
  Report Type: Spontaneous
  Country: ZA (occurrence: ZA)
  Receive Date: 20241028
  Receipt Date: 20250210
  Transmission Date: 20250408
  Serious: Yes (Other)
  Sender: PFIZER
  Company Number: ZA-PFIZER INC-PV202400138028

PATIENT
  Age: 52 Year
  Sex: Female

DRUGS (4)
  1. METHOTREXATE SODIUM [Suspect]
     Active Substance: METHOTREXATE SODIUM
     Dosage: 25 MG, WEEKLY
     Dates: start: 200806
  2. CHLOROQUINE [Concomitant]
     Active Substance: CHLOROQUINE
     Dosage: 200 MG, DAILY
     Dates: start: 200807, end: 202001
  3. LEFLUNOMIDE [Concomitant]
     Active Substance: LEFLUNOMIDE
     Dosage: 200 MG, DAILY
     Dates: start: 202002, end: 202102
  4. SULFASALAZINE [Concomitant]
     Active Substance: SULFASALAZINE
     Dates: start: 200906, end: 200906

REACTIONS (2)
  - Ocular melanoma [Unknown]
  - Treatment failure [Unknown]

NARRATIVE: CASE EVENT DATE: 20240601
